FAERS Safety Report 23050995 (Version 3)
Quarter: 2023Q4

REPORT INFORMATION
  Report Type: Spontaneous
  Country: FR (occurrence: FR)
  Receive Date: 20231010
  Receipt Date: 20231019
  Transmission Date: 20240110
  Serious: Yes (Hospitalization, Other)
  Sender: FDA-Public Use
  Company Number: FR-AFSSAPS-RN2023000919

PATIENT
  Age: 61 Year
  Sex: Female
  Weight: 65 kg

DRUGS (22)
  1. MORPHINE SULFATE [Suspect]
     Active Substance: MORPHINE SULFATE
     Indication: Pain
     Dosage: 2 DF, 2X/DAY (2 DOSAGE FORM, Q12H)
     Route: 048
     Dates: start: 2023
  2. MORPHINE SULFATE [Suspect]
     Active Substance: MORPHINE SULFATE
     Dosage: 3 DF, 2X/DAY (3 DOSAGE FORM, Q12H)
     Route: 048
     Dates: start: 2023
  3. CLOMIPRAMINE HYDROCHLORIDE [Suspect]
     Active Substance: CLOMIPRAMINE HYDROCHLORIDE
     Indication: Mental disorder
     Dosage: 150 MG IN THE EVENING, LONG-TERM TREATMENT
     Route: 048
  4. MORPHINE SULFATE [Suspect]
     Active Substance: MORPHINE SULFATE
     Indication: Pain
     Dosage: 1 GEL MORNING, NOON AND EVENING IF PAIN
     Route: 048
     Dates: start: 2023
  5. QUETIAPINE FUMARATE [Suspect]
     Active Substance: QUETIAPINE FUMARATE
     Indication: Mental disorder
     Dosage: 100 MG PER DAY LONG-TERM (100 MG, QD)
     Route: 048
  6. CYAMEMAZINE [Suspect]
     Active Substance: CYAMEMAZINE
     Indication: Mental disorder
     Dosage: 100 MG AT BEDTIME, LONG-TERM TREATMENT
     Route: 048
  7. ENBREL [Suspect]
     Active Substance: ETANERCEPT
     Indication: Mental disorder
     Dosage: UNK
     Route: 065
  8. LACTULOSE [Suspect]
     Active Substance: LACTULOSE
     Indication: Product used for unknown indication
     Dosage: UNK
     Route: 065
  9. SPAGULAX [Suspect]
     Active Substance: HERBALS\PLANTAGO OVATA SEED
     Indication: Mental disorder
     Dosage: UNK
     Route: 065
  10. LEVOTHYROXINE SODIUM [Suspect]
     Active Substance: LEVOTHYROXINE SODIUM
     Indication: Product used for unknown indication
     Dosage: UNK
     Route: 065
  11. PREDNISONE [Suspect]
     Active Substance: PREDNISONE
     Indication: Product used for unknown indication
     Dosage: 1 TABLET IN THE MORNING (1 DF, QD) (SCORED TABLET)
     Route: 048
     Dates: start: 20230728
  12. PILOCARPINE [Suspect]
     Active Substance: PILOCARPINE
     Indication: Product used for unknown indication
     Dosage: UNK
     Route: 065
  13. FESOTERODINE [Suspect]
     Active Substance: FESOTERODINE
     Indication: Mental disorder
     Dosage: UNK
     Route: 065
  14. CALCIUM LEVULINATE ANHYDROUS\CHOLECALCIFEROL\CYANOCOBALAMIN [Suspect]
     Active Substance: CALCIUM LEVULINATE ANHYDROUS\CHOLECALCIFEROL\CYANOCOBALAMIN
     Indication: Mental disorder
     Dosage: UNK
     Route: 065
  15. PANTOPRAZOLE [Suspect]
     Active Substance: PANTOPRAZOLE
     Indication: Gastric ulcer
     Dosage: 40 MG, QD (AMP IM)
     Route: 048
     Dates: start: 2023
  16. TROSPIUM CHLORIDE [Suspect]
     Active Substance: TROSPIUM CHLORIDE
     Indication: Mental disorder
     Dosage: UNK
     Route: 065
  17. POTASSIUM BITARTRATE\SODIUM BICARBONATE [Suspect]
     Active Substance: POTASSIUM BITARTRATE\SODIUM BICARBONATE
     Indication: Mental disorder
     Dosage: UNK
     Route: 065
  18. SKENAN [Suspect]
     Active Substance: MORPHINE SULFATE
     Indication: Pain
     Dosage: 2 DF, 2X/DAY (2 DOSAGE FORM, Q12H) (2DF, BID)
     Route: 048
     Dates: start: 2023
  19. SKENAN [Suspect]
     Active Substance: MORPHINE SULFATE
     Dosage: 3 DOSAGE FORM, PRN (AS NECESSARY), 2DF, PRN MORNING, NOON AND NIGHT IF PAIN
     Route: 048
     Dates: start: 2023
  20. SKENAN [Suspect]
     Active Substance: MORPHINE SULFATE
     Dosage: 1 GEL MORNING AND EVENING
     Route: 048
     Dates: start: 2023
  21. ANETHOLTRITHION [Suspect]
     Active Substance: ANETHOLTRITHION
     Indication: Mental disorder
     Dosage: UNK
     Route: 065
  22. PANTOPRAZOLE SODIUM [Suspect]
     Active Substance: PANTOPRAZOLE SODIUM
     Indication: Gastric ulcer
     Dosage: 40 MG QD
     Route: 048
     Dates: start: 2023

REACTIONS (2)
  - Psychiatric decompensation [Unknown]
  - Oedema peripheral [Not Recovered/Not Resolved]

NARRATIVE: CASE EVENT DATE: 20230701
